FAERS Safety Report 10066119 (Version 5)
Quarter: 2015Q2

REPORT INFORMATION
  Report Type: Spontaneous
  Country: US (occurrence: US)
  Receive Date: 20140408
  Receipt Date: 20150505
  Transmission Date: 20150821
  Serious: No
  Sender: FDA-Public Use
  Company Number: US-PFIZER INC-2014096008

PATIENT
  Age: 56 Year
  Sex: Male

DRUGS (2)
  1. METHADONE [Concomitant]
     Active Substance: METHADONE HYDROCHLORIDE
     Dosage: UNK
  2. SUTENT [Suspect]
     Active Substance: SUNITINIB MALATE
     Indication: RENAL CANCER
     Dosage: 50 MG, CYCLIC: DAILY, 4 WEEKS ON, 2 WEEKS OFF
     Route: 048
     Dates: start: 20131031

REACTIONS (8)
  - Pain in extremity [Unknown]
  - Asthenia [Unknown]
  - Dry skin [Unknown]
  - Headache [Unknown]
  - Gait disturbance [Unknown]
  - Drug interaction [Unknown]
  - Skin exfoliation [Unknown]
  - Abscess [Unknown]

NARRATIVE: CASE EVENT DATE: 20141104
